FAERS Safety Report 16703668 (Version 2)
Quarter: 2019Q3

REPORT INFORMATION
  Report Type: Spontaneous
  Country: PL (occurrence: PL)
  Receive Date: 20190814
  Receipt Date: 20190829
  Transmission Date: 20191004
  Serious: Yes (Other)
  Sender: FDA-Public Use
  Company Number: PL-PFIZER INC-2019342860

PATIENT
  Age: 4 Year
  Sex: Female

DRUGS (5)
  1. FILGRASTIM [Suspect]
     Active Substance: FILGRASTIM
     Dosage: 10 UG/KG, FOR 4 DAYS FOLLOWED BY PLERIXAFOR
     Route: 058
  2. FILGRASTIM [Suspect]
     Active Substance: FILGRASTIM
     Indication: HAEMATOPOIETIC STEM CELL MOBILISATION
     Dosage: 12 UG/KG, STIMULATION 19 DAYS AFTER THE RAPID COJEC CYCLE
     Route: 058
  3. FILGRASTIM [Suspect]
     Active Substance: FILGRASTIM
     Dosage: 12 UG/KG, GIVEN 18 D AFTER TVD CHEMOTHERAPY
     Route: 058
  4. PLERIXAFOR [Concomitant]
     Active Substance: PLERIXAFOR
     Indication: HAEMATOPOIETIC STEM CELL MOBILISATION
     Dosage: 0.24 MG/KG, (10 TO 14 HOURS BEFORE LEUKAPHERESIS)
  5. CYCLOPHOSPHAMIDE. [Concomitant]
     Active Substance: CYCLOPHOSPHAMIDE
     Dosage: 4 G/M2

REACTIONS (1)
  - Drug ineffective [Unknown]
